FAERS Safety Report 23357983 (Version 2)
Quarter: 2024Q1

REPORT INFORMATION
  Report Type: Spontaneous
  Country: US (occurrence: US)
  Receive Date: 20240102
  Receipt Date: 20240224
  Transmission Date: 20240410
  Serious: Yes (Other)
  Sender: FDA-Public Use
  Company Number: US-TEVA-VS-3139454

PATIENT
  Age: 13 Year
  Sex: Male
  Weight: 47.6 kg

DRUGS (2)
  1. LETROZOLE [Suspect]
     Active Substance: LETROZOLE
     Indication: Short stature
     Route: 065
  2. rhGH [Concomitant]
     Indication: Short stature
     Route: 065

REACTIONS (1)
  - Obsessive-compulsive symptom [Recovering/Resolving]
